FAERS Safety Report 8514007 (Version 6)
Quarter: 2013Q1

REPORT INFORMATION
  Report Type: Spontaneous
  Country: GB (occurrence: GB)
  Receive Date: 20120410
  Receipt Date: 20130103
  Transmission Date: 20140127
  Serious: Yes (Death, Hospitalization, Other)
  Sender: FDA-Public Use
  Company Number: PHFR2012GB002068

PATIENT
  Age: 60 Year
  Sex: Female

DRUGS (2)
  1. CLOZARIL [Suspect]
     Indication: SCHIZOPHRENIA
     Route: 048
     Dates: start: 20060517
  2. CLOZARIL [Suspect]
     Dosage: 300 MG, QD
     Route: 048

REACTIONS (7)
  - Laryngeal cancer [Fatal]
  - Laryngeal obstruction [Fatal]
  - Metastases to lymph nodes [Fatal]
  - Epiglottic carcinoma [Fatal]
  - Upper airway obstruction [Recovered/Resolved]
  - White blood cell count increased [Unknown]
  - Neutrophil count increased [Unknown]
